FAERS Safety Report 13080250 (Version 1)
Quarter: 2017Q1

REPORT INFORMATION
  Report Type: Spontaneous
  Country: US (occurrence: US)
  Receive Date: 20170103
  Receipt Date: 20170103
  Transmission Date: 20170428
  Serious: Yes (Other)
  Sender: FDA-Public Use
  Company Number: US-ASTELLAS-2016US043411

PATIENT
  Sex: Male

DRUGS (1)
  1. MYRBETRIQ [Suspect]
     Active Substance: MIRABEGRON
     Indication: POLLAKIURIA
     Dosage: UNK, UNKNOWN FREQ.
     Route: 065
     Dates: start: 20161003

REACTIONS (4)
  - Back injury [Unknown]
  - Hip fracture [Unknown]
  - Unevaluable event [Unknown]
  - Urinary tract infection [Recovering/Resolving]
